FAERS Safety Report 25091861 (Version 5)
Quarter: 2025Q3

REPORT INFORMATION
  Report Type: Spontaneous
  Country: US (occurrence: US)
  Receive Date: 20250318
  Receipt Date: 20250912
  Transmission Date: 20251020
  Serious: No
  Sender: KARYOPHARM THERAPEUTICS
  Company Number: US-KARYOPHARM-2025KPT100019

PATIENT

DRUGS (14)
  1. SELINEXOR [Suspect]
     Active Substance: SELINEXOR
     Indication: Plasma cell myeloma
     Route: 048
     Dates: start: 20250311, end: 202506
  2. ALBUTEROL SULFATE [Concomitant]
     Active Substance: ALBUTEROL SULFATE
  3. AMBIEN [Concomitant]
     Active Substance: ZOLPIDEM TARTRATE
  4. BUDESONIDE [Concomitant]
     Active Substance: BUDESONIDE
  5. DEXAMETHASONE [Concomitant]
     Active Substance: DEXAMETHASONE
  6. EMEND [Concomitant]
     Active Substance: APREPITANT
  7. KEPPRA [Concomitant]
     Active Substance: LEVETIRACETAM
  8. KYPROLIS [Concomitant]
     Active Substance: CARFILZOMIB
  9. PROCHLORPERAZINE [Concomitant]
     Active Substance: PROCHLORPERAZINE
  10. SINGULAIR [Concomitant]
     Active Substance: MONTELUKAST SODIUM
  11. TOPIRAMATE [Concomitant]
     Active Substance: TOPIRAMATE
  12. XANAX [Concomitant]
     Active Substance: ALPRAZOLAM
  13. IMMUNE GLOBULIN [Concomitant]
  14. METOPROLOL [Concomitant]
     Active Substance: METOPROLOL

REACTIONS (9)
  - Tinnitus [Unknown]
  - Headache [Recovered/Resolved]
  - Illness [Not Recovered/Not Resolved]
  - Nausea [Recovering/Resolving]
  - Fatigue [Recovering/Resolving]
  - Diarrhoea [Recovered/Resolved]
  - Product blister packaging issue [Unknown]
  - Incorrect dose administered [Unknown]
  - Accidental overdose [Unknown]

NARRATIVE: CASE EVENT DATE: 20250101
